FAERS Safety Report 7201476-7 (Version None)
Quarter: 2010Q4

REPORT INFORMATION
  Report Type: 
  Country: None (occurrence: None)
  Receive Date: 20101229
  Receipt Date: 20101221
  Transmission Date: 20110411
  Serious: Yes (Other)
  Sender: FDA-Public Use
  Company Number: AU-BRISTOL-MYERS SQUIBB COMPANY-15454721

PATIENT
  Age: 33 Year
  Sex: Female

DRUGS (1)
  1. HYDROXYUREA [Suspect]

REACTIONS (2)
  - DEPRESSION [None]
  - PSORIASIS [None]
